FAERS Safety Report 19352061 (Version 1)
Quarter: 2021Q2

REPORT INFORMATION
  Report Type: Spontaneous
  Country: IN (occurrence: IN)
  Receive Date: 20210531
  Receipt Date: 20210531
  Transmission Date: 20210717
  Serious: No
  Sender: FDA-Public Use
  Company Number: IN-LUPIN LIMITED-2021-07936

PATIENT
  Age: 64 Year
  Sex: Female
  Weight: 75 kg

DRUGS (4)
  1. GLUCONORM SR [Suspect]
     Active Substance: METFORMIN HYDROCHLORIDE
     Dosage: 02 DOSAGE FORM, QD (BEFOR MEAL)
     Route: 048
     Dates: start: 20210515, end: 20210517
  2. GLUCONORM SR [Suspect]
     Active Substance: METFORMIN HYDROCHLORIDE
     Indication: DIABETES MELLITUS
     Dosage: 02 DOSAGE FORM, QD (EMPTY STOMACH, FROM LAST 2 MONTHS)
     Route: 048
  3. THYRONORM [Concomitant]
     Active Substance: LEVOTHYROXINE
     Indication: THYROID DISORDER
     Dosage: 50 UNK
     Route: 065
  4. STAMLO [Concomitant]
     Active Substance: AMLODIPINE BESYLATE
     Indication: BLOOD PRESSURE ABNORMAL
     Dosage: 5 UNK
     Route: 065

REACTIONS (6)
  - Poor quality product administered [Unknown]
  - Product substitution issue [Unknown]
  - Product taste abnormal [Unknown]
  - Product quality issue [Unknown]
  - Dizziness [Unknown]
  - Feeling abnormal [Unknown]

NARRATIVE: CASE EVENT DATE: 20210515
